FAERS Safety Report 25141239 (Version 1)
Quarter: 2025Q1

REPORT INFORMATION
  Report Type: Spontaneous
  Country: CN (occurrence: CN)
  Receive Date: 20250331
  Receipt Date: 20250331
  Transmission Date: 20250409
  Serious: Yes (Hospitalization, Disabling, Other)
  Sender: PFIZER
  Company Number: CN-PFIZER INC-PV202500036327

PATIENT
  Age: 59 Year
  Sex: Female

DRUGS (6)
  1. CYTARABINE [Suspect]
     Active Substance: CYTARABINE
     Indication: Acute myeloid leukaemia
     Dosage: 16 MG, 2X/DAY
     Route: 041
     Dates: start: 20250225, end: 20250304
  2. ACLARUBICIN HYDROCHLORIDE [Suspect]
     Active Substance: ACLARUBICIN HYDROCHLORIDE
     Indication: Acute myeloid leukaemia
     Dosage: 20 MG, 1X/DAY
     Route: 041
     Dates: start: 20250225, end: 20250228
  3. VENCLEXTA [Suspect]
     Active Substance: VENETOCLAX
     Indication: Acute myeloid leukaemia
     Dosage: 100 MG, 1X/DAY
     Route: 048
     Dates: start: 20250301, end: 20250301
  4. VENCLEXTA [Suspect]
     Active Substance: VENETOCLAX
     Dosage: 200 MG, 1X/DAY
     Route: 048
     Dates: start: 20250302, end: 20250302
  5. VENCLEXTA [Suspect]
     Active Substance: VENETOCLAX
     Dosage: 200 MG, 1X/DAY
     Route: 048
     Dates: start: 20250303, end: 20250303
  6. MOLGRAMOSTIM [Concomitant]
     Active Substance: MOLGRAMOSTIM
     Indication: Acute myeloid leukaemia
     Dosage: 300 UG, 1X/DAY
     Route: 058
     Dates: start: 20250225, end: 20250306

REACTIONS (5)
  - Myelosuppression [Unknown]
  - Metastases to central nervous system [Unknown]
  - Acute myeloid leukaemia [Unknown]
  - Malignant neoplasm progression [Unknown]
  - Lacunar infarction [Unknown]

NARRATIVE: CASE EVENT DATE: 20250301
